FAERS Safety Report 21989743 (Version 2)
Quarter: 2024Q3

REPORT INFORMATION
  Report Type: Spontaneous
  Country: BR (occurrence: BR)
  Receive Date: 20230214
  Receipt Date: 20240827
  Transmission Date: 20241017
  Serious: No
  Sender: CELLTRION
  Company Number: BR-CELLTRION INC.-2023BR002975

PATIENT

DRUGS (8)
  1. TRUXIMA [Suspect]
     Active Substance: RITUXIMAB-ABBS
     Indication: Multiple sclerosis
     Dosage: 2 AMPOULES
     Route: 042
     Dates: start: 2021
  2. TRUXIMA [Suspect]
     Active Substance: RITUXIMAB-ABBS
     Indication: Neuromyelitis optica spectrum disorder
     Dosage: 2 AMPOULES
     Route: 042
     Dates: start: 202208
  3. TRUXIMA [Suspect]
     Active Substance: RITUXIMAB-ABBS
     Dosage: 4 AMPOULES EVERY 6 MONTHS
     Route: 042
  4. TRUXIMA [Suspect]
     Active Substance: RITUXIMAB-ABBS
     Dosage: 2 AMPOULES OF 500 MG (1000 MG TOTAL) EVERY 15 DAY AND THEN AFTER AN INTERVAL OF 6 MONTHS
     Route: 042
  5. TRUXIMA [Suspect]
     Active Substance: RITUXIMAB-ABBS
     Dosage: 2 AMPOULES
     Route: 042
     Dates: start: 20240812
  6. PREGABALIN [Concomitant]
     Active Substance: PREGABALIN
     Indication: Pain
     Dosage: 1 PILL PER DAY
     Route: 048
     Dates: start: 2017
  7. CARBAMAZEPINE [Concomitant]
     Active Substance: CARBAMAZEPINE
     Indication: Pain
     Dosage: 1 PILL PER DAY
     Route: 048
  8. DIPYRONE [Concomitant]
     Active Substance: DIPYRONE
     Indication: Pain
     Dosage: ALMOST EVERY DAY
     Route: 048

REACTIONS (5)
  - Oral discomfort [Recovered/Resolved]
  - Eye irritation [Recovered/Resolved]
  - Throat tightness [Recovered/Resolved]
  - Throat irritation [Recovered/Resolved]
  - Off label use [Unknown]

NARRATIVE: CASE EVENT DATE: 20210101
